FAERS Safety Report 8760950 (Version 2)
Quarter: 2012Q4

REPORT INFORMATION
  Report Type: 
  Country: US (occurrence: US)
  Receive Date: 20120830
  Receipt Date: 20121003
  Transmission Date: 20130627
  Serious: Yes (Hospitalization)
  Sender: FDA-Public Use
  Company Number: PHEH2012US016762

PATIENT
  Sex: Female

DRUGS (6)
  1. EXJADE [Suspect]
     Indication: IRON OVERLOAD
  2. HYDREA [Concomitant]
  3. ASPIRIN [Concomitant]
  4. VITAMINS [Concomitant]
  5. ANTICOAGULANTS [Concomitant]
  6. LASIX [Concomitant]

REACTIONS (4)
  - Pulmonary oedema [Unknown]
  - Cardiac failure congestive [Unknown]
  - Dyspnoea [Unknown]
  - Serum ferritin increased [Unknown]
